FAERS Safety Report 13553088 (Version 3)
Quarter: 2019Q1

REPORT INFORMATION
  Report Type: Spontaneous
  Country: US (occurrence: US)
  Receive Date: 20170517
  Receipt Date: 20190204
  Transmission Date: 20190417
  Serious: Yes (Death, Other)
  Sender: FDA-Public Use
  Company Number: US-ASTRAZENECA-2017SE49938

PATIENT
  Age: 23798 Day
  Sex: Female

DRUGS (46)
  1. NEXIUM [Suspect]
     Active Substance: ESOMEPRAZOLE MAGNESIUM
     Indication: GASTROOESOPHAGEAL REFLUX DISEASE
     Route: 048
     Dates: start: 20121024
  2. ADVAIR HFA [Concomitant]
     Active Substance: FLUTICASONE PROPIONATE\SALMETEROL XINAFOATE
     Dates: start: 20070125
  3. NAPROXEN. [Concomitant]
     Active Substance: NAPROXEN
     Dates: start: 20070705
  4. FLUCONAZOLE. [Concomitant]
     Active Substance: FLUCONAZOLE
     Dates: start: 20080925
  5. ATENOLOL. [Concomitant]
     Active Substance: ATENOLOL
     Dates: start: 20100525
  6. TAMIFLU [Concomitant]
     Active Substance: OSELTAMIVIR PHOSPHATE
     Dates: start: 20101001
  7. PREVACID [Suspect]
     Active Substance: LANSOPRAZOLE
     Indication: GASTROOESOPHAGEAL REFLUX DISEASE
     Route: 065
     Dates: start: 2007
  8. VIGAMOX [Concomitant]
     Active Substance: MOXIFLOXACIN HYDROCHLORIDE
     Dates: start: 20070122
  9. CAPTOPRIL. [Concomitant]
     Active Substance: CAPTOPRIL
     Dates: start: 20070124
  10. HYDROCODONE [Concomitant]
     Active Substance: HYDROCODONE
     Dates: start: 20070302
  11. CYCLOBENZAPRINE. [Concomitant]
     Active Substance: CYCLOBENZAPRINE
     Dates: start: 20070330
  12. SULAR [Concomitant]
     Active Substance: NISOLDIPINE
     Dates: start: 20080130
  13. MAGNESIUM OXIDE. [Concomitant]
     Active Substance: MAGNESIUM OXIDE
     Dates: start: 20100923
  14. LIDOCAINE. [Concomitant]
     Active Substance: LIDOCAINE
     Dates: start: 20141107
  15. FLONASE [Concomitant]
     Active Substance: FLUTICASONE PROPIONATE
     Dates: start: 20070619
  16. JANUVIA [Concomitant]
     Active Substance: SITAGLIPTIN PHOSPHATE
     Dates: start: 20080206
  17. VESICARE [Concomitant]
     Active Substance: SOLIFENACIN SUCCINATE
     Dates: start: 20081026
  18. NASONEX [Concomitant]
     Active Substance: MOMETASONE FUROATE
     Dates: start: 20090929
  19. SULFAMETHOXAZOLE [Concomitant]
     Active Substance: SULFAMETHOXAZOLE
     Dates: start: 20121112
  20. BACLOFEN. [Concomitant]
     Active Substance: BACLOFEN
     Dates: start: 20121226
  21. INSULIN [Concomitant]
     Active Substance: INSULIN NOS
     Dates: start: 20140218
  22. NEXIUM [Suspect]
     Active Substance: ESOMEPRAZOLE MAGNESIUM
     Indication: GASTROOESOPHAGEAL REFLUX DISEASE
     Route: 048
     Dates: start: 2007, end: 2015
  23. NEXIUM [Suspect]
     Active Substance: ESOMEPRAZOLE MAGNESIUM
     Indication: GASTROOESOPHAGEAL REFLUX DISEASE
     Route: 048
     Dates: start: 20070806
  24. PREVACID [Suspect]
     Active Substance: LANSOPRAZOLE
     Indication: GASTROOESOPHAGEAL REFLUX DISEASE
     Route: 065
     Dates: start: 20070302
  25. NOVOLIN [Concomitant]
     Active Substance: INSULIN HUMAN
     Dates: start: 20070125
  26. METOPROLOL. [Concomitant]
     Active Substance: METOPROLOL
     Dates: start: 20080503
  27. LANTUS [Concomitant]
     Active Substance: INSULIN GLARGINE
     Dates: start: 20081020
  28. TRAMADOL. [Concomitant]
     Active Substance: TRAMADOL
     Dates: start: 20070330
  29. CRESTOR [Concomitant]
     Active Substance: ROSUVASTATIN CALCIUM
     Dates: start: 20071028
  30. ACTOS [Concomitant]
     Active Substance: PIOGLITAZONE HYDROCHLORIDE
     Dates: start: 20071102
  31. AMMONIUM LACTATE. [Concomitant]
     Active Substance: AMMONIUM LACTATE
     Dates: start: 20080613
  32. METOCLOPRAMIDE. [Concomitant]
     Active Substance: METOCLOPRAMIDE
     Dates: start: 20081002
  33. PHENTERMINE. [Concomitant]
     Active Substance: PHENTERMINE
     Dates: start: 20090127
  34. KLOR-CON [Concomitant]
     Active Substance: POTASSIUM CHLORIDE
     Dates: start: 20090530
  35. AMITRIPTYLINE [Concomitant]
     Active Substance: AMITRIPTYLINE
     Dates: start: 20140205
  36. NEXIUM [Suspect]
     Active Substance: ESOMEPRAZOLE MAGNESIUM
     Indication: GASTROOESOPHAGEAL REFLUX DISEASE
     Route: 048
     Dates: start: 20070806, end: 20130502
  37. AMOX [Concomitant]
     Active Substance: UNSPECIFIED INGREDIENT
     Dates: start: 20070216
  38. COMBIVENT [Concomitant]
     Active Substance: ALBUTEROL SULFATE\IPRATROPIUM BROMIDE
     Dates: start: 20070216
  39. LYRICA [Concomitant]
     Active Substance: PREGABALIN
     Dates: start: 20071102
  40. NISOLDIPINE. [Concomitant]
     Active Substance: NISOLDIPINE
     Dates: start: 20100709
  41. HYDROXYZINE [Concomitant]
     Active Substance: HYDROXYZINE HYDROCHLORIDE
     Dates: start: 20100923
  42. NEXIUM [Suspect]
     Active Substance: ESOMEPRAZOLE MAGNESIUM
     Indication: GASTROOESOPHAGEAL REFLUX DISEASE
     Route: 048
     Dates: start: 20080303
  43. GABAPENTIN. [Concomitant]
     Active Substance: GABAPENTIN
     Dates: start: 20070124
  44. HYDROCHLOROTHIAZIDE. [Concomitant]
     Active Substance: HYDROCHLOROTHIAZIDE
     Dates: start: 20070124
  45. LEVEMIR [Concomitant]
     Active Substance: INSULIN DETEMIR
     Dates: start: 20080206
  46. DOXYCYCLINE HYCLATE. [Concomitant]
     Active Substance: DOXYCYCLINE HYCLATE
     Dates: start: 20100923

REACTIONS (3)
  - Chronic kidney disease [Unknown]
  - End stage renal disease [Fatal]
  - Nephropathy [Unknown]

NARRATIVE: CASE EVENT DATE: 20140311
